FAERS Safety Report 5031175-1 (Version None)
Quarter: 2006Q2

REPORT INFORMATION
  Report Type: 
  Country: None (occurrence: None)
  Receive Date: 20060621
  Receipt Date: 20060424
  Transmission Date: 20061013
  Serious: Yes (Hospitalization)
  Sender: FDA-Public Use
  Company Number: NLWYE579726APR06

PATIENT
  Sex: Female

DRUGS (6)
  1. ENBREL [Suspect]
     Indication: RHEUMATOID ARTHRITIS
     Dates: start: 20060323
  2. CALCICHEW [Concomitant]
  3. BRUFEN [Concomitant]
     Dosage: 2 TIMES 800 (RETARD)
  4. FOSAMAX [Concomitant]
     Dosage: 1 TIME PER WEEK
  5. PREDNISONE [Concomitant]
     Dosage: 7.5 MG
  6. OMEPRAZOLE [Concomitant]
     Dosage: 20

REACTIONS (5)
  - CONDITION AGGRAVATED [None]
  - COUGH [None]
  - NASOPHARYNGITIS [None]
  - PYREXIA [None]
  - RHEUMATOID ARTHRITIS [None]
